FAERS Safety Report 9398795 (Version 2)
Quarter: 2013Q3

REPORT INFORMATION
  Report Type: Spontaneous
  Country: JP (occurrence: JP)
  Receive Date: 20130712
  Receipt Date: 20130726
  Transmission Date: 20140515
  Serious: Yes (Hospitalization, Other)
  Sender: FDA-Public Use
  Company Number: JP-JHP PHARMACEUTICALS, LLC-JHP201300459

PATIENT
  Age: 39 Year
  Sex: 0

DRUGS (1)
  1. DANTRIUM [Suspect]
     Indication: CEREBRAL PALSY
     Dosage: 25 MG, DAILY
     Route: 048

REACTIONS (1)
  - Enterocolitis [Unknown]
